FAERS Safety Report 5983906-1 (Version None)
Quarter: 2008Q4

REPORT INFORMATION
  Report Type: 
  Country: None (occurrence: None)
  Receive Date: 20081208
  Receipt Date: 20081202
  Transmission Date: 20090506
  Serious: Yes (Other)
  Sender: FDA-Public Use
  Company Number: US-JNJFOC-20080906857

PATIENT
  Sex: Female
  Weight: 103.42 kg

DRUGS (4)
  1. LEVAQUIN [Suspect]
     Indication: LYMPHADENITIS
     Route: 048
  2. DIOVAN [Concomitant]
     Indication: HYPERTENSION
     Route: 048
  3. HUMULIN INSULIN [Concomitant]
     Indication: DIABETES MELLITUS
     Route: 058
  4. TYLENOL (CAPLET) [Concomitant]
     Indication: PAIN
     Route: 048

REACTIONS (16)
  - ARTHRALGIA [None]
  - BLISTER [None]
  - CHILLS [None]
  - DYSPEPSIA [None]
  - HALLUCINATION [None]
  - HEADACHE [None]
  - HYPERHIDROSIS [None]
  - HYPERTENSION [None]
  - MYALGIA [None]
  - NAUSEA [None]
  - PAIN [None]
  - PHOTOPSIA [None]
  - PYREXIA [None]
  - RASH GENERALISED [None]
  - SWOLLEN TONGUE [None]
  - TONGUE BLISTERING [None]
